FAERS Safety Report 5140559-2 (Version None)
Quarter: 2006Q4

REPORT INFORMATION
  Report Type: 
  Country: None (occurrence: None)
  Receive Date: 20061031
  Receipt Date: 20061020
  Transmission Date: 20070319
  Serious: Yes (Other)
  Sender: FDA-Public Use
  Company Number: US-JNJFOC-20061005272

PATIENT
  Age: 48 Year
  Sex: Female
  Weight: 62.6 kg

DRUGS (4)
  1. RENOVA EMOLLIENT CREAM .05% [Suspect]
     Indication: SKIN DISCOLOURATION
  2. SINGULAIR [Concomitant]
  3. ZYRTEC [Concomitant]
  4. NASONEX [Concomitant]

REACTIONS (1)
  - VOCAL CORD PARALYSIS [None]
